FAERS Safety Report 21209086 (Version 1)
Quarter: 2022Q3

REPORT INFORMATION
  Report Type: Report from Study
  Country: CA (occurrence: CA)
  Receive Date: 20220812
  Receipt Date: 20220812
  Transmission Date: 20221026
  Serious: Yes (Other)
  Sender: FDA-Public Use
  Company Number: CA-GILEAD-2022-0591169

PATIENT
  Age: 62 Year
  Sex: Female

DRUGS (2)
  1. SACITUZUMAB GOVITECAN [Suspect]
     Active Substance: SACITUZUMAB GOVITECAN
     Indication: Triple negative breast cancer
     Dosage: 770 MG
     Route: 042
     Dates: start: 20211214, end: 20220628
  2. ERIBULIN [Concomitant]
     Active Substance: ERIBULIN

REACTIONS (2)
  - Disease progression [Unknown]
  - Product dose omission issue [Unknown]

NARRATIVE: CASE EVENT DATE: 20220628
